FAERS Safety Report 4541143-1 (Version None)
Quarter: 2004Q4

REPORT INFORMATION
  Report Type: 
  Country: None (occurrence: None)
  Receive Date: 20041227
  Receipt Date: 20041216
  Transmission Date: 20050328
  Serious: Yes (Hospitalization)
  Sender: FDA-Public Use
  Company Number: 6012275

PATIENT
  Age: 92 Year
  Sex: Female

DRUGS (2)
  1. BISOPROLOL FUMARATE [Suspect]
     Indication: CARDIAC FAILURE CONGESTIVE
     Dosage: 10 MG
     Route: 048
     Dates: start: 20031201
  2. ENALAPRIL GENERICS (ENALAPRIL) [Suspect]
     Indication: CARDIAC FAILURE CONGESTIVE
     Dosage: 5 MG
     Route: 048
     Dates: start: 20040524, end: 20041003

REACTIONS (3)
  - CIRCULATORY COLLAPSE [None]
  - COUGH [None]
  - HEART RATE DECREASED [None]
